FAERS Safety Report 8000381-6 (Version None)
Quarter: 2011Q4

REPORT INFORMATION
  Report Type: 
  Country: None (occurrence: None)
  Receive Date: 20111220
  Receipt Date: 20111220
  Transmission Date: 20120403
  Serious: Yes (Hospitalization)
  Sender: FDA-Public Use
  Company Number: None

PATIENT
  Sex: Male
  Weight: 69.4003 kg

DRUGS (4)
  1. PEGASYS [Suspect]
     Indication: HEPATITIS C
     Dosage: PEGASYS 180MG QWH SQ
     Route: 058
     Dates: start: 20110915
  2. ACETAMINOPHEN [Concomitant]
  3. FOLIC ACID [Concomitant]
  4. RIBAVIRIN [Suspect]
     Dosage: RIBAVIRIN 200MG BID PO
     Route: 048
     Dates: start: 20110915

REACTIONS (1)
  - HAEMOLYTIC ANAEMIA [None]
